FAERS Safety Report 22159904 (Version 1)
Quarter: 2023Q1

REPORT INFORMATION
  Report Type: Spontaneous
  Country: GB (occurrence: GB)
  Receive Date: 20230331
  Receipt Date: 20230331
  Transmission Date: 20230417
  Serious: Yes (Hospitalization)
  Sender: FDA-Public Use
  Company Number: GB-MHRA-MED-202303071712195850-WJCFK

PATIENT
  Age: 52 Year
  Sex: Female
  Weight: 60 kg

DRUGS (1)
  1. EMGALITY [Suspect]
     Active Substance: GALCANEZUMAB-GNLM
     Indication: Migraine
     Dosage: 120 MG, MONTHLY (1/M)
     Route: 065
     Dates: start: 20210701, end: 20230209

REACTIONS (2)
  - Acute myocardial infarction [Recovered/Resolved]
  - Coronary artery occlusion [Unknown]

NARRATIVE: CASE EVENT DATE: 20230110
